FAERS Safety Report 8971791 (Version 1)
Quarter: 2012Q4

REPORT INFORMATION
  Report Type: Report from Study
  Country: ZA (occurrence: ZA)
  Receive Date: 20121217
  Receipt Date: 20121217
  Transmission Date: 20130627
  Serious: Yes (Death)
  Sender: FDA-Public Use
  Company Number: ZA-SANOFI-AVENTIS-F01200900573

PATIENT
  Age: 70 Year
  Sex: Male

DRUGS (10)
  1. OXALIPLATIN [Suspect]
     Indication: RECTAL CANCER METASTATIC
     Dosage: Unit dose: 130 mg/m2
     Route: 041
     Dates: start: 20081110
  2. OXALIPLATIN [Suspect]
     Indication: RECTAL CANCER METASTATIC
     Route: 041
     Dates: start: 20090202, end: 20090202
  3. FLUOROURACIL [Suspect]
     Indication: DRUG USE FOR UNKNOWN INDICATION
     Route: 048
     Dates: start: 20081110
  4. FLUOROURACIL [Suspect]
     Indication: DRUG USE FOR UNKNOWN INDICATION
     Route: 048
     Dates: start: 20090202, end: 20090202
  5. BEVACIZUMAB [Suspect]
     Indication: DRUG USE FOR UNKNOWN INDICATION
     Route: 041
     Dates: start: 20081110
  6. BEVACIZUMAB [Suspect]
     Indication: DRUG USE FOR UNKNOWN INDICATION
     Route: 041
     Dates: start: 20090202, end: 20090202
  7. MAGNESIUM SULFATE [Concomitant]
     Dosage: Dose text: 1 Amp Pre and 1amp post
     Route: 042
     Dates: start: 20081110, end: 20090202
  8. CALCIUM GLUCONATE [Concomitant]
     Dosage: Dose text: 1 amp pre and 1 amp post
     Route: 042
     Dates: start: 20081110, end: 20090202
  9. BETANOID [Concomitant]
     Indication: PROPHYLACTIC
     Route: 042
     Dates: start: 20081110, end: 20090202
  10. PALONOSETRON [Concomitant]
     Indication: NAUSEA
     Route: 042
     Dates: start: 20081110, end: 20090202

REACTIONS (1)
  - Obstruction [Fatal]
